FAERS Safety Report 8586444-5 (Version None)
Quarter: 2012Q3

REPORT INFORMATION
  Report Type: 
  Country: None (occurrence: None)
  Receive Date: 20120810
  Receipt Date: 20120731
  Transmission Date: 20120928
  Serious: No
  Sender: FDA-Public Use
  Company Number: US-ASTRAZENECA-2011SE01798

PATIENT
  Age: 56 Year
  Sex: Male
  Weight: 70.3 kg

DRUGS (8)
  1. AMLODIPINE [Concomitant]
  2. SEROQUEL [Suspect]
     Indication: BIPOLAR DISORDER
     Route: 048
  3. SEROQUEL [Suspect]
     Route: 048
  4. PRAVASTATIN SODIUM [Concomitant]
     Indication: BLOOD CHOLESTEROL ABNORMAL
  5. FINIFIBRATE [Concomitant]
     Indication: BLOOD CHOLESTEROL ABNORMAL
  6. CLONAZIPAM [Concomitant]
  7. SEROQUEL [Suspect]
     Route: 048
  8. CLORACON [Concomitant]
     Indication: MINERAL SUPPLEMENTATION

REACTIONS (6)
  - INSOMNIA [None]
  - DRUG DOSE OMISSION [None]
  - HALLUCINATION, AUDITORY [None]
  - INTENTIONAL DRUG MISUSE [None]
  - HYPOCHOLESTEROLAEMIA [None]
  - WRONG DRUG ADMINISTERED [None]
